FAERS Safety Report 6856402-7 (Version None)
Quarter: 2010Q2

REPORT INFORMATION
  Report Type: 
  Country: None (occurrence: None)
  Receive Date: 20100630
  Receipt Date: 20100325
  Transmission Date: 20101027
  Serious: No
  Sender: FDA-Public Use
  Company Number: 1000012735

PATIENT

DRUGS (2)
  1. BYSTOLIC [Suspect]
     Dosage: 2.5 MG
  2. DIOVAN [Concomitant]

REACTIONS (7)
  - DECREASED INTEREST [None]
  - EATING DISORDER [None]
  - EMOTIONAL DISORDER [None]
  - FEELING HOT [None]
  - INSOMNIA [None]
  - TACHYPHRENIA [None]
  - TENSION [None]
